FAERS Safety Report 7936329-X (Version None)
Quarter: 2011Q4

REPORT INFORMATION
  Report Type: 
  Country: None (occurrence: None)
  Receive Date: 20111123
  Receipt Date: 20111115
  Transmission Date: 20120403
  Serious: Yes (Congenital Anomaly, Other)
  Sender: FDA-Public Use
  Company Number: US-PFIZER INC-2011077324

PATIENT
  Sex: Male
  Weight: 2.6 kg

DRUGS (9)
  1. ZOLOFT [Suspect]
     Dosage: 50 MG, 1X/DAY
     Route: 064
     Dates: start: 20040925
  2. ZOLOFT [Suspect]
     Indication: DEPRESSION
     Dosage: 100 MG, UNK
     Route: 064
  3. SUDAFED 12 HOUR [Concomitant]
     Indication: BRONCHITIS
     Dosage: UNK
     Route: 064
  4. SUDAFED 12 HOUR [Concomitant]
     Indication: SINUSITIS
  5. ZOLOFT [Suspect]
     Indication: ANXIETY
     Dosage: 50 MG, UNK
     Route: 064
  6. EFFEXOR [Suspect]
     Dosage: UNK
     Route: 064
  7. MULTI-VITAMINS [Concomitant]
     Dosage: UNK
     Route: 064
  8. FOLIC ACID [Concomitant]
     Dosage: UNK
     Route: 064
  9. EFFEXOR XR [Suspect]
     Indication: ANXIETY
     Dosage: 75 MG, UNK
     Route: 064

REACTIONS (51)
  - DOUBLE OUTLET RIGHT VENTRICLE [None]
  - VENTRICULAR HYPOPLASIA [None]
  - UPPER RESPIRATORY TRACT INFECTION [None]
  - MUSCLE SPASTICITY [None]
  - GASTROENTERITIS ROTAVIRUS [None]
  - DEHYDRATION [None]
  - IRRITABILITY [None]
  - BRONCHIOLITIS [None]
  - PULMONARY VALVE STENOSIS [None]
  - INTESTINAL ISCHAEMIA [None]
  - VENTRICULAR SEPTAL DEFECT [None]
  - TRICUSPID VALVE INCOMPETENCE [None]
  - HAEMATOCHEZIA [None]
  - CYANOSIS [None]
  - CEREBROVASCULAR ACCIDENT [None]
  - MITRAL VALVE ATRESIA [None]
  - DACRYOSTENOSIS ACQUIRED [None]
  - FOETAL EXPOSURE DURING PREGNANCY [None]
  - APNOEA [None]
  - HYPOXIA [None]
  - CARDIOPULMONARY FAILURE [None]
  - SUBDURAL HAEMATOMA [None]
  - DEVELOPMENTAL DELAY [None]
  - NODAL RHYTHM [None]
  - ASCITES [None]
  - THROMBOSIS [None]
  - ATRIAL SEPTAL DEFECT [None]
  - PYELOCALIECTASIS [None]
  - RESPIRATORY DISTRESS [None]
  - CEREBRAL ISCHAEMIA [None]
  - TALIPES [None]
  - ATELECTASIS [None]
  - OTITIS MEDIA [None]
  - CARDIAC ARREST [None]
  - SINUS BRADYCARDIA [None]
  - GASTROOESOPHAGEAL REFLUX DISEASE [None]
  - HYPERSENSITIVITY [None]
  - FAILURE TO THRIVE [None]
  - HEART VALVE INCOMPETENCE [None]
  - AORTIC VALVE INCOMPETENCE [None]
  - CARDIOMEGALY [None]
  - PURULENT DISCHARGE [None]
  - SINUS ARRHYTHMIA [None]
  - COARCTATION OF THE AORTA [None]
  - DIAPHRAGMATIC PARALYSIS [None]
  - MITRAL VALVE STENOSIS [None]
  - DYSPHAGIA [None]
  - SUPRAVENTRICULAR TACHYCARDIA [None]
  - CONSTIPATION [None]
  - DECUBITUS ULCER [None]
  - FATIGUE [None]
